FAERS Safety Report 6644704-9 (Version None)
Quarter: 2010Q1

REPORT INFORMATION
  Report Type: 
  Country: None (occurrence: None)
  Receive Date: 20100322
  Receipt Date: 20100310
  Transmission Date: 20100710
  Serious: Yes (Other)
  Sender: FDA-Public Use
  Company Number: JP-PFIZER INC-2010032133

PATIENT
  Sex: Male

DRUGS (1)
  1. CHAMPIX [Suspect]
     Route: 048

REACTIONS (2)
  - DIARRHOEA [None]
  - MENTAL DISORDER [None]
